FAERS Safety Report 7424170-6 (Version None)
Quarter: 2011Q2

REPORT INFORMATION
  Report Type: 
  Country: None (occurrence: None)
  Receive Date: 20110419
  Receipt Date: 20110411
  Transmission Date: 20111010
  Serious: Yes (Death, Hospitalization)
  Sender: FDA-Public Use
  Company Number: MY-MERCK-1103USA01432

PATIENT
  Sex: Female
  Weight: 55 kg

DRUGS (1)
  1. INVANZ [Suspect]
     Indication: COMMUNITY ACQUIRED INFECTION
     Route: 041
     Dates: start: 20110224, end: 20110308

REACTIONS (3)
  - PYREXIA [None]
  - SEPSIS [None]
  - CONVULSION [None]
